FAERS Safety Report 6501030-6 (Version None)
Quarter: 2009Q4

REPORT INFORMATION
  Report Type: 
  Country: None (occurrence: None)
  Receive Date: 20091216
  Receipt Date: 20090604
  Transmission Date: 20100525
  Serious: No
  Sender: FDA-Public Use
  Company Number: A0788733A

PATIENT
  Age: 65 Year
  Sex: Female

DRUGS (2)
  1. COMMIT [Suspect]
     Route: 002
  2. COMMIT [Suspect]
     Route: 002

REACTIONS (1)
  - NAUSEA [None]
